FAERS Safety Report 6021336-7 (Version None)
Quarter: 2008Q4

REPORT INFORMATION
  Report Type: 
  Country: None (occurrence: None)
  Receive Date: 20081229
  Receipt Date: 20081222
  Transmission Date: 20090506
  Serious: Yes (Life-Threatening, Hospitalization)
  Sender: FDA-Public Use
  Company Number: A0759513A

PATIENT
  Age: 61 Year
  Sex: Male

DRUGS (4)
  1. KIVEXA [Suspect]
     Indication: HIV INFECTION
     Route: 065
     Dates: start: 20070918
  2. NEVIRAPINE [Concomitant]
     Indication: HIV INFECTION
     Dosage: 200MG UNKNOWN
     Route: 065
     Dates: start: 20040527
  3. CALCIUM [Concomitant]
     Indication: OSTEOPENIA
     Dosage: 500MG UNKNOWN
     Route: 065
  4. VITAMIN D [Concomitant]
     Indication: OSTEOPENIA
     Dosage: 800IU PER DAY
     Route: 065

REACTIONS (3)
  - ACUTE MYOCARDIAL INFARCTION [None]
  - CHEST PAIN [None]
  - MYOCARDIAL INFARCTION [None]
